FAERS Safety Report 25378860 (Version 1)
Quarter: 2025Q2

REPORT INFORMATION
  Report Type: Spontaneous
  Country: US (occurrence: US)
  Receive Date: 20250530
  Receipt Date: 20250530
  Transmission Date: 20250717
  Serious: Yes (Other)
  Sender: TEVA
  Company Number: US-TEVA-VS-3333287

PATIENT
  Age: 82 Year
  Sex: Female

DRUGS (2)
  1. FLUTICASONE PROPIONATE\SALMETEROL XINAFOATE [Suspect]
     Active Substance: FLUTICASONE PROPIONATE\SALMETEROL XINAFOATE
     Indication: Chronic obstructive pulmonary disease
     Dosage: 100/50MCG/DOSE-MCG/DOSE, ONCE EVERY 12 HOURS
     Route: 065
  2. FLUTICASONE PROPIONATE\SALMETEROL XINAFOATE [Suspect]
     Active Substance: FLUTICASONE PROPIONATE\SALMETEROL XINAFOATE

REACTIONS (6)
  - Cerebrovascular accident [Unknown]
  - Dizziness [Recovered/Resolved]
  - Adverse drug reaction [Unknown]
  - Vertigo [Recovered/Resolved]
  - Excessive cerumen production [Recovered/Resolved]
  - Gait inability [Recovered/Resolved]
